FAERS Safety Report 12847967 (Version 1)
Quarter: 2016Q4

REPORT INFORMATION
  Report Type: Spontaneous
  Country: US (occurrence: US)
  Receive Date: 20161014
  Receipt Date: 20161014
  Transmission Date: 20170207
  Serious: No
  Sender: FDA-Public Use
  Company Number: US-JNJFOC-20160924511

PATIENT
  Age: 69 Year
  Sex: Female
  Weight: 102.06 kg

DRUGS (5)
  1. CALCIUM [Concomitant]
     Active Substance: CALCIUM
     Indication: NUTRITIONAL SUPPLEMENTATION
     Dosage: SINCE 2 YEARS
     Route: 065
  2. VITAMIN D [Concomitant]
     Active Substance: CHOLECALCIFEROL
     Indication: NUTRITIONAL SUPPLEMENTATION
     Dosage: SINCE 2 YEARS
     Route: 065
  3. MULTI VITAMIN [Concomitant]
     Active Substance: VITAMINS
     Indication: VITAMIN SUPPLEMENTATION
     Dosage: SINCE 2 YEARS
     Route: 065
  4. TYLENOL EXTRA STRENGTH [Suspect]
     Active Substance: ACETAMINOPHEN
     Indication: ARTHRALGIA
     Dosage: 1 TO 2 TABLETS EVERY 6-8 HOURS
     Route: 048
  5. OMEGARED [Concomitant]
     Indication: NUTRITIONAL SUPPLEMENTATION
     Dosage: SINCE 2 YEARS
     Route: 065

REACTIONS (3)
  - Drug ineffective [Unknown]
  - Intentional underdose [Unknown]
  - Incorrect drug administration duration [Unknown]
